FAERS Safety Report 9032290 (Version 1)
Quarter: 2013Q1

REPORT INFORMATION
  Report Type: Spontaneous
  Country: US (occurrence: US)
  Receive Date: 20130122
  Receipt Date: 20130122
  Transmission Date: 20140127
  Serious: Yes (Hospitalization, Other)
  Sender: FDA-Public Use
  Company Number: US-COVIDIEN/TYCO HEALTHCARE/MALLINCKRODT-T201204515

PATIENT
  Sex: Male

DRUGS (3)
  1. GABLOFEN [Suspect]
     Indication: MUSCLE SPASTICITY
     Dosage: 140 MCG/DAY
     Route: 037
     Dates: start: 201110
  2. GABLOFEN [Suspect]
     Dosage: 100 MCG/DAY
     Route: 037
     Dates: end: 201110
  3. OTHER OPIOIDS [Concomitant]
     Indication: PAIN
     Dosage: UNK

REACTIONS (7)
  - Unresponsive to stimuli [Unknown]
  - Musculoskeletal stiffness [Unknown]
  - Amnesia [Unknown]
  - Drooling [Unknown]
  - Incorrect dose administered [Unknown]
  - Drug ineffective [Unknown]
  - Device failure [Unknown]
